FAERS Safety Report 5226471-9 (Version None)
Quarter: 2007Q1

REPORT INFORMATION
  Report Type: 
  Country: None (occurrence: None)
  Receive Date: 20070201
  Receipt Date: 20070122
  Transmission Date: 20070707
  Serious: Yes (Death)
  Sender: FDA-Public Use
  Company Number: 2007AC00113

PATIENT
  Age: 45 Year
  Sex: Female

DRUGS (10)
  1. LIDOCAINE [Suspect]
     Indication: GENERAL ANAESTHESIA
  2. PROPOFOL [Suspect]
     Indication: GENERAL ANAESTHESIA
  3. PROPRANOLOL [Suspect]
     Dosage: INCREMENTAL DOSES UP TO A TOTAL DOSE OF 2 MG
     Route: 042
  4. FENTANYL [Suspect]
     Indication: GENERAL ANAESTHESIA
  5. ROCURONIUM BROMIDE [Suspect]
     Indication: GENERAL ANAESTHESIA
  6. SEVOFLURANE [Concomitant]
     Indication: MAINTENANCE OF ANAESTHESIA
  7. NITROUS OXIDE W/ OXYGEN [Concomitant]
     Indication: MAINTENANCE OF ANAESTHESIA
  8. OXYGEN [Concomitant]
     Indication: MAINTENANCE OF ANAESTHESIA
  9. NEOSTIGMINE [Concomitant]
     Indication: NEUROMUSCULAR BLOCKADE REVERSAL
  10. GLYCOPYRROLATE [Concomitant]
     Indication: NEUROMUSCULAR BLOCKADE REVERSAL

REACTIONS (5)
  - AKINESIA [None]
  - BRADYCARDIA [None]
  - CARDIAC ARREST [None]
  - PHAEOCHROMOCYTOMA [None]
  - PULMONARY OEDEMA [None]
